FAERS Safety Report 10990640 (Version 1)
Quarter: 2015Q2

REPORT INFORMATION
  Report Type: Report from Study
  Country: AU (occurrence: AU)
  Receive Date: 20150406
  Receipt Date: 20150406
  Transmission Date: 20150821
  Serious: Yes (Other)
  Sender: FDA-Public Use
  Company Number: AU-SA-2015SA041090

PATIENT
  Age: 69 Year
  Sex: Male

DRUGS (1)
  1. LANTUS [Suspect]
     Active Substance: INSULIN GLARGINE
     Dosage: DOSE:40 UNIT(S)
     Route: 065
     Dates: start: 20130301

REACTIONS (3)
  - Hypoglycaemia [Recovering/Resolving]
  - Blood glucose increased [Recovering/Resolving]
  - Vascular graft [Unknown]

NARRATIVE: CASE EVENT DATE: 2014
